FAERS Safety Report 13623715 (Version 3)
Quarter: 2017Q3

REPORT INFORMATION
  Report Type: Spontaneous
  Country: JP (occurrence: JP)
  Receive Date: 20170607
  Receipt Date: 20170707
  Transmission Date: 20171127
  Serious: Yes (Hospitalization, Other)
  Sender: FDA-Public Use
  Company Number: JP-BRISTOL-MYERS SQUIBB COMPANY-BMS-2017-049695

PATIENT
  Age: 28 Year
  Sex: Female

DRUGS (2)
  1. ABILIFY [Suspect]
     Active Substance: ARIPIPRAZOLE
     Indication: BORDERLINE PERSONALITY DISORDER
     Dosage: 6 MG, QD, AFTER BREAKFAST
     Route: 048
     Dates: end: 20160511
  2. PISULCIN [Concomitant]
     Active Substance: AMPICILLIN SODIUM\SULBACTAM SODIUM
     Indication: WHITE BLOOD CELL COUNT INCREASED
     Dosage: 1.5 G, TID
     Route: 042

REACTIONS (6)
  - Intrapartum haemorrhage [Unknown]
  - Premature rupture of membranes [Unknown]
  - Maternal exposure during pregnancy [Recovered/Resolved]
  - Threatened labour [Unknown]
  - Premature delivery [Unknown]
  - Suppressed lactation [Unknown]

NARRATIVE: CASE EVENT DATE: 20160514
